FAERS Safety Report 5801266-3 (Version None)
Quarter: 2008Q3

REPORT INFORMATION
  Report Type: 
  Country: None (occurrence: None)
  Receive Date: 20080707
  Receipt Date: 20080623
  Transmission Date: 20090109
  Serious: Yes (Other)
  Sender: FDA-Public Use
  Company Number: CA-JNJFOC-20080605517

PATIENT

DRUGS (2)
  1. METHYLPHENIDATE HCL [Suspect]
     Route: 048
  2. METHYLPHENIDATE HCL [Suspect]
     Indication: DEMENTIA ALZHEIMER'S TYPE
     Dosage: FOR 3 DAYS
     Route: 048

REACTIONS (7)
  - DECREASED APPETITE [None]
  - DELUSION [None]
  - HALLUCINATION [None]
  - INSOMNIA [None]
  - IRRITABILITY [None]
  - NIGHTMARE [None]
  - RESTLESSNESS [None]
